FAERS Safety Report 20921064 (Version 1)
Quarter: 2022Q2

REPORT INFORMATION
  Report Type: Spontaneous
  Country: US (occurrence: CA)
  Receive Date: 20220606
  Receipt Date: 20220606
  Transmission Date: 20220720
  Serious: Yes (Hospitalization, Other)
  Sender: FDA-Public Use
  Company Number: US-BAXTER-2022BAX011538

PATIENT
  Age: 11 Year
  Sex: Female
  Weight: 53.5 kg

DRUGS (3)
  1. CYCLOPHOSPHAMIDE [Suspect]
     Active Substance: CYCLOPHOSPHAMIDE
     Indication: Neuroblastoma
     Dosage: 0.75 MG/M2, QD
     Route: 042
     Dates: start: 20220322, end: 20220326
  2. LORLATINIB [Suspect]
     Active Substance: LORLATINIB
     Indication: Neuroblastoma
     Dosage: 115 MG/M2, QD
     Route: 048
     Dates: start: 20220322
  3. TOPOTECAN [Suspect]
     Active Substance: TOPOTECAN HYDROCHLORIDE
     Indication: Neuroblastoma
     Dosage: 250 MG/M2, QD
     Route: 042
     Dates: start: 20220322, end: 20220326

REACTIONS (3)
  - Epistaxis [Recovered/Resolved]
  - Neutropenia [Unknown]
  - Pyrexia [Unknown]

NARRATIVE: CASE EVENT DATE: 20220403
